FAERS Safety Report 5615034-9 (Version None)
Quarter: 2008Q1

REPORT INFORMATION
  Report Type: 
  Country: None (occurrence: None)
  Receive Date: 20080201
  Receipt Date: 20080121
  Transmission Date: 20080703
  Serious: Yes (Other)
  Sender: FDA-Public Use
  Company Number: PL-1164709

PATIENT
  Age: 36 Year
  Sex: Male

DRUGS (1)
  1. BSS [Suspect]
     Indication: EYE LASER SURGERY
     Dosage: 15 ML INTRAOCULAR
     Route: 031
     Dates: start: 20071127

REACTIONS (2)
  - KERATOPATHY [None]
  - MEIBOMIAN GLAND DISCHARGE [None]
